FAERS Safety Report 6927915-4 (Version None)
Quarter: 2010Q3

REPORT INFORMATION
  Report Type: 
  Country: None (occurrence: None)
  Receive Date: 20100817
  Receipt Date: 20100805
  Transmission Date: 20110219
  Serious: Yes (Life-Threatening)
  Sender: FDA-Public Use
  Company Number: JP-PFIZER INC-2009303514

PATIENT
  Age: 25 Year
  Sex: Female
  Weight: 40 kg

DRUGS (4)
  1. SUNITINIB MALATE [Suspect]
     Indication: GASTROINTESTINAL STROMAL TUMOUR
     Dosage: 37.5 MG, 1X/DAY
     Route: 048
     Dates: start: 20080804
  2. DIAZEPAM [Concomitant]
     Dosage: UNK
     Route: 042
     Dates: start: 20081126
  3. OMEPRAL [Concomitant]
     Dosage: UNK
     Route: 042
     Dates: start: 20080804
  4. SODIUM ACETATE [Concomitant]
     Dosage: UNK
     Route: 042
     Dates: start: 20080804

REACTIONS (1)
  - TUMOUR HAEMORRHAGE [None]
